FAERS Safety Report 24879739 (Version 1)
Quarter: 2025Q1

REPORT INFORMATION
  Report Type: Report from Study
  Country: CA (occurrence: CA)
  Receive Date: 20250123
  Receipt Date: 20250123
  Transmission Date: 20250408
  Serious: Yes (Other)
  Sender: FERRING
  Company Number: CA-FERRINGPH-2025FE00186

PATIENT

DRUGS (14)
  1. DEGARELIX [Suspect]
     Active Substance: DEGARELIX
     Indication: Hormone-dependent prostate cancer
     Dosage: 80 MG, MONTHLY
     Route: 065
     Dates: start: 20231103
  2. DEGARELIX [Suspect]
     Active Substance: DEGARELIX
     Dosage: 240 MG, ONCE/SINGLE
     Route: 065
     Dates: start: 20231003, end: 20231003
  3. TAMSULOSIN [Concomitant]
     Active Substance: TAMSULOSIN
  4. AMLODIPINE [Concomitant]
     Active Substance: AMLODIPINE BESYLATE
  5. CANDESARTAN [Concomitant]
     Active Substance: CANDESARTAN
  6. GABAPENTIN [Concomitant]
     Active Substance: GABAPENTIN
  7. PROPRANOLOL [Concomitant]
     Active Substance: PROPRANOLOL HYDROCHLORIDE
  8. ASPIRIN [Concomitant]
     Active Substance: ASPIRIN
  9. ATORVASTATIN [Concomitant]
     Active Substance: ATORVASTATIN
  10. VITAMIN D NOS [Concomitant]
     Active Substance: CHOLECALCIFEROL\ERGOCALCIFEROL
  11. ESCITALOPRAM [Concomitant]
     Active Substance: ESCITALOPRAM OXALATE
  12. CALCIUM [Concomitant]
     Active Substance: CALCIUM
  13. NITRO [CHLOROBUTANOL;NAPHAZOLINE NITRATE;PHENYLEPHRINE HYDROCHLORIDE] [Concomitant]
  14. ISOSORBIDE DINITRATE [Concomitant]
     Active Substance: ISOSORBIDE DINITRATE

REACTIONS (1)
  - Hypotension [Recovering/Resolving]

NARRATIVE: CASE EVENT DATE: 20250106
